FAERS Safety Report 7388087-8 (Version None)
Quarter: 2011Q1

REPORT INFORMATION
  Report Type: 
  Country: None (occurrence: None)
  Receive Date: 20110324
  Receipt Date: 20110315
  Transmission Date: 20110831
  Serious: Yes (Hospitalization)
  Sender: FDA-Public Use
  Company Number: 2011MA002436

PATIENT
  Age: 29 Year

DRUGS (4)
  1. AMITRIPTYLINE [Concomitant]
  2. BUPROPION HYDROCHLORIDE [Suspect]
     Dosage: 150 MG, OD,
  3. FLUSPIRILENE [Concomitant]
  4. CYPROTERONE [Concomitant]

REACTIONS (7)
  - INSOMNIA [None]
  - DEPRESSION [None]
  - REFUSAL OF TREATMENT BY PATIENT [None]
  - DRUG INTERACTION [None]
  - CONDITION AGGRAVATED [None]
  - GRAND MAL CONVULSION [None]
  - MENTAL IMPAIRMENT [None]
